FAERS Safety Report 10184238 (Version 1)
Quarter: 2014Q2

REPORT INFORMATION
  Report Type: Spontaneous
  Country: US (occurrence: US)
  Receive Date: 20140520
  Receipt Date: 20140520
  Transmission Date: 20141212
  Serious: No
  Sender: FDA-Public Use
  Company Number: US-PFIZER INC-2014136954

PATIENT
  Sex: Male

DRUGS (2)
  1. EFFEXOR XR [Suspect]
     Dosage: 75 UNK
  2. EFFEXOR XR [Suspect]
     Dosage: 300 UNK

REACTIONS (2)
  - Rash pruritic [Recovered/Resolved]
  - Scar [Unknown]
